FAERS Safety Report 4504411-5 (Version None)
Quarter: 2004Q4

REPORT INFORMATION
  Report Type: 
  Country: None (occurrence: None)
  Receive Date: 20041116
  Receipt Date: 20041029
  Transmission Date: 20050328
  Serious: Yes (Other)
  Sender: FDA-Public Use
  Company Number: 2004IC000893

PATIENT

DRUGS (3)
  1. FLUOROURACIL [Suspect]
  2. ELOXATIN [Suspect]
     Dosage: INTRAVENOUS
     Route: 042
  3. AVASTIN [Suspect]

REACTIONS (2)
  - BLOOD TEST ABNORMAL [None]
  - HAEMOLYTIC URAEMIC SYNDROME [None]
